FAERS Safety Report 15717038 (Version 1)
Quarter: 2018Q4

REPORT INFORMATION
  Report Type: Spontaneous
  Country: US (occurrence: US)
  Receive Date: 20181213
  Receipt Date: 20181213
  Transmission Date: 20190205
  Serious: No
  Sender: FDA-Public Use
  Company Number: US-PFIZER INC-2018513606

PATIENT
  Age: 11 Year
  Sex: Female

DRUGS (1)
  1. GENOTROPIN [Suspect]
     Active Substance: SOMATROPIN
     Dosage: 1.6 MG, UNK (6 DAYS A WEEK)
     Dates: start: 20140628

REACTIONS (8)
  - Aspartate aminotransferase decreased [Unknown]
  - Haemoglobin decreased [Unknown]
  - Headache [Unknown]
  - Mean cell volume decreased [Unknown]
  - Mean cell haemoglobin decreased [Unknown]
  - Blood alkaline phosphatase decreased [Unknown]
  - Alanine aminotransferase decreased [Unknown]
  - Lymphocyte count increased [Unknown]
